FAERS Safety Report 8497326-1 (Version None)
Quarter: 2012Q3

REPORT INFORMATION
  Report Type: 
  Country: None (occurrence: None)
  Receive Date: 20120709
  Receipt Date: 20120608
  Transmission Date: 20120928
  Serious: No
  Sender: FDA-Public Use
  Company Number: US-AMGEN-USASP2012036008

PATIENT
  Age: 39 Year
  Sex: Female

DRUGS (2)
  1. ENBREL [Suspect]
     Indication: RHEUMATOID ARTHRITIS
     Dosage: 50 MG, QWK
     Dates: start: 20120502
  2. HYDROXYCHLOROQUINE SULFATE [Concomitant]
     Dosage: UNK

REACTIONS (5)
  - FATIGUE [None]
  - PYREXIA [None]
  - CONTUSION [None]
  - HEADACHE [None]
  - SINUS CONGESTION [None]
